FAERS Safety Report 10578462 (Version 1)
Quarter: 2014Q4

REPORT INFORMATION
  Report Type: Spontaneous
  Country: US (occurrence: None)
  Receive Date: 20141111
  Receipt Date: 20141111
  Transmission Date: 20150529
  Serious: Yes (Other)
  Sender: FDA-Public Use
  Company Number: None

PATIENT
  Age: 69 Year
  Sex: Female
  Weight: 63.5 kg

DRUGS (1)
  1. ALPHAGAN P [Suspect]
     Active Substance: BRIMONIDINE TARTRATE
     Indication: GLAUCOMA
     Dosage: ONE DROP TWO X DAY (AM.PM)
     Route: 047
     Dates: start: 20140731, end: 20141025

REACTIONS (2)
  - Eye swelling [None]
  - Eye pruritus [None]

NARRATIVE: CASE EVENT DATE: 20141025
